FAERS Safety Report 24854064 (Version 3)
Quarter: 2025Q1

REPORT INFORMATION
  Report Type: Spontaneous
  Country: US (occurrence: US)
  Receive Date: 20250117
  Receipt Date: 20250123
  Transmission Date: 20250409
  Serious: Yes (Other)
  Sender: AMGEN
  Company Number: US-AMGEN-USASP2025006536

PATIENT
  Age: 92 Year
  Sex: Male
  Weight: 60.45 kg

DRUGS (3)
  1. EPOGEN [Suspect]
     Active Substance: ERYTHROPOIETIN
     Indication: Product used for unknown indication
     Route: 065
  2. BRUKINSA [Suspect]
     Active Substance: ZANUBRUTINIB
     Indication: Waldenstrom^s macroglobulinaemia
     Dosage: 160 MILLIGRAM, BID
     Route: 048
     Dates: start: 20230425
  3. BRUKINSA [Suspect]
     Active Substance: ZANUBRUTINIB
     Indication: Thrombocytopenia

REACTIONS (9)
  - Haemoglobin decreased [Unknown]
  - Peripheral swelling [Unknown]
  - Back disorder [Unknown]
  - Pain [Unknown]
  - Diarrhoea [Unknown]
  - Spleen atrophy [Unknown]
  - Joint swelling [Unknown]
  - Erythema [Unknown]
  - Muscle disorder [Unknown]
